FAERS Safety Report 23989024 (Version 1)
Quarter: 2024Q2

REPORT INFORMATION
  Report Type: Spontaneous
  Country: AU (occurrence: AU)
  Receive Date: 20240619
  Receipt Date: 20240619
  Transmission Date: 20240716
  Serious: Yes (Hospitalization)
  Sender: FDA-Public Use
  Company Number: AU-STRIDES ARCOLAB LIMITED-2024SP007065

PATIENT

DRUGS (6)
  1. DOXEPIN HYDROCHLORIDE [Suspect]
     Active Substance: DOXEPIN HYDROCHLORIDE
     Indication: Product used for unknown indication
     Dosage: 700 MILLIGRAM
     Route: 048
  2. PROPRANOLOL [Suspect]
     Active Substance: PROPRANOLOL HYDROCHLORIDE
     Indication: Product used for unknown indication
     Dosage: 800 MILLIGRAM
     Route: 048
  3. ORPHENADRINE [Suspect]
     Active Substance: ORPHENADRINE
     Indication: Product used for unknown indication
     Dosage: 1000 MILLIGRAM, SUSTAINED-RELEASE
     Route: 048
  4. PREGABALIN [Suspect]
     Active Substance: PREGABALIN
     Indication: Product used for unknown indication
     Dosage: 1500 MILLIGRAM
     Route: 048
  5. RAMIPRIL [Suspect]
     Active Substance: RAMIPRIL
     Indication: Product used for unknown indication
     Dosage: 30 MILLIGRAM
     Route: 048
  6. VENLAFAXINE [Suspect]
     Active Substance: VENLAFAXINE HYDROCHLORIDE
     Indication: Product used for unknown indication
     Dosage: 600 MILLIGRAM, SUSTAINED-RELEASE
     Route: 048

REACTIONS (4)
  - Electrocardiogram QT prolonged [Unknown]
  - Somnolence [Unknown]
  - Intentional overdose [Unknown]
  - Toxicity to various agents [Unknown]
